FAERS Safety Report 10058210 (Version 1)
Quarter: 2014Q2

REPORT INFORMATION
  Report Type: Spontaneous
  Country: US (occurrence: US)
  Receive Date: 20140404
  Receipt Date: 20140404
  Transmission Date: 20141212
  Serious: No
  Sender: FDA-Public Use
  Company Number: US-PFIZER INC-2014095343

PATIENT
  Age: 29 Year
  Sex: Female
  Weight: 77.1 kg

DRUGS (3)
  1. PRISTIQ [Suspect]
     Indication: ANXIETY
     Dosage: 50 MG, DAILY
     Dates: start: 2013
  2. PRISTIQ [Suspect]
     Indication: DEPRESSION
  3. LAMICTAL [Suspect]
     Dosage: 50 MG, 2X/DAY
     Dates: start: 2013

REACTIONS (4)
  - Drug withdrawal syndrome [Unknown]
  - Coordination abnormal [Unknown]
  - Stress [Unknown]
  - Amnesia [Unknown]
